FAERS Safety Report 23248994 (Version 1)
Quarter: 2023Q4

REPORT INFORMATION
  Report Type: Other
  Country: CA (occurrence: None)
  Receive Date: 20231201
  Receipt Date: 20231201
  Transmission Date: 20240109
  Serious: Yes (Other)
  Sender: FDA-Public Use
  Company Number: CA-ROCHE-3366280

PATIENT
  Sex: Female

DRUGS (3)
  1. ACTEMRA [Suspect]
     Active Substance: TOCILIZUMAB
     Indication: Rheumatoid arthritis
     Route: 058
     Dates: start: 20230514, end: 2023
  2. SYNTHROID [Concomitant]
     Active Substance: LEVOTHYROXINE SODIUM
  3. PREDNISONE [Concomitant]
     Active Substance: PREDNISONE

REACTIONS (15)
  - Eye disorder [Unknown]
  - Myalgia [Unknown]
  - Myalgia [Unknown]
  - Muscle spasms [Not Recovered/Not Resolved]
  - Sputum increased [Unknown]
  - Lacrimation increased [Unknown]
  - Rhinorrhoea [Unknown]
  - Pharyngeal disorder [Unknown]
  - Bone swelling [Unknown]
  - Urticaria [Unknown]
  - Dysphagia [Unknown]
  - Choking [Unknown]
  - Pharyngeal disorder [Unknown]
  - Urticaria [Unknown]
  - Oesophageal obstruction [Unknown]
